FAERS Safety Report 22959731 (Version 2)
Quarter: 2024Q3

REPORT INFORMATION
  Report Type: Spontaneous
  Country: KR (occurrence: KR)
  Receive Date: 20230920
  Receipt Date: 20240701
  Transmission Date: 20241016
  Serious: Yes (Other)
  Sender: REGENERON
  Company Number: KR-BAYER-2023A129914

PATIENT
  Sex: Male

DRUGS (1)
  1. EYLEA [Suspect]
     Active Substance: AFLIBERCEPT
     Indication: Neovascular age-related macular degeneration
     Dosage: SOLUTION FOR INJECTION; STRENGTH: 40MG/ML
     Dates: start: 20200724, end: 20230311

REACTIONS (1)
  - Retinal oedema [Unknown]

NARRATIVE: CASE EVENT DATE: 20220107
